FAERS Safety Report 10918196 (Version 1)
Quarter: 2015Q1

REPORT INFORMATION
  Report Type: Spontaneous
  Country: US (occurrence: US)
  Receive Date: 20150316
  Receipt Date: 20150316
  Transmission Date: 20150721
  Serious: No
  Sender: FDA-Public Use
  Company Number: US-GALDERMA-US14002790

PATIENT
  Age: 48 Year
  Sex: Male

DRUGS (5)
  1. TRI-LUMA [Suspect]
     Active Substance: FLUOCINOLONE ACETONIDE\HYDROQUINONE\TRETINOIN
     Route: 061
     Dates: start: 20140722
  2. UNSPECIFIED MOISTURIZER WITH SPF 50 [Concomitant]
     Indication: PROPHYLAXIS AGAINST SOLAR RADIATION
  3. UNSPECIFIED MOISTURIZER WITH SPF 50 [Concomitant]
     Indication: DRY SKIN PROPHYLAXIS
     Route: 061
     Dates: start: 2011
  4. TRI-LUMA [Suspect]
     Active Substance: FLUOCINOLONE ACETONIDE\HYDROQUINONE\TRETINOIN
     Indication: SKIN HYPERPIGMENTATION
     Route: 061
     Dates: start: 20140717, end: 20140723
  5. UNSPECIFIED BAR SOAP [Concomitant]
     Indication: THERAPEUTIC SKIN CARE TOPICAL
     Route: 061
     Dates: start: 1966

REACTIONS (6)
  - Rash erythematous [Recovered/Resolved]
  - Pruritus [Recovered/Resolved]
  - Erythema [Recovered/Resolved]
  - Skin fissures [Recovered/Resolved]
  - Dry skin [Recovered/Resolved]
  - Skin burning sensation [Recovered/Resolved]

NARRATIVE: CASE EVENT DATE: 20140717
